FAERS Safety Report 10400485 (Version 1)
Quarter: 2014Q3

REPORT INFORMATION
  Report Type: Spontaneous
  Country: US (occurrence: US)
  Receive Date: 20140821
  Receipt Date: 20140821
  Transmission Date: 20150326
  Serious: No
  Sender: FDA-Public Use
  Company Number: US-ASTRAZENECA-2013SE68060

PATIENT
  Age: 65 Year
  Sex: Male
  Weight: 118.8 kg

DRUGS (8)
  1. THREE EYE DROPS IN EACH EYE [Concomitant]
     Indication: GLAUCOMA
     Dosage: THREE EYE DROPS IN EACH EYE
  2. FLU SHOT [Concomitant]
     Active Substance: INFLUENZA VIRUS VACCINE
     Indication: ANTIVIRAL PROPHYLAXIS
     Dosage: ONCE
     Route: 058
     Dates: start: 2013
  3. SYMBICORT [Suspect]
     Active Substance: BUDESONIDE\FORMOTEROL FUMARATE DIHYDRATE
     Indication: CHRONIC OBSTRUCTIVE PULMONARY DISEASE
     Dosage: 160/4.5, 2 PUFF, BID
     Route: 055
     Dates: start: 2010
  4. GRAPE SEED EXTRACT [Concomitant]
     Active Substance: GRAPE SEED EXTRACT
     Indication: ANTIOXIDANT THERAPY
  5. GRAPE SEED EXTRACT [Concomitant]
     Active Substance: GRAPE SEED EXTRACT
     Indication: ANTIINFLAMMATORY THERAPY
  6. PROVENTIL [Concomitant]
     Active Substance: ALBUTEROL
     Indication: RESPIRATORY DISORDER
     Dosage: PRN
     Route: 055
     Dates: start: 2010
  7. SYMBICORT [Suspect]
     Active Substance: BUDESONIDE\FORMOTEROL FUMARATE DIHYDRATE
     Indication: CHRONIC OBSTRUCTIVE PULMONARY DISEASE
     Dosage: 160/4.5, 1 PUFF, BID
     Route: 055
     Dates: start: 2010
  8. ASPART INSULIN [Concomitant]
     Indication: DIABETES MELLITUS
     Dosage: SLIDING SCALE, AC
     Route: 058

REACTIONS (5)
  - Productive cough [Unknown]
  - Dyspnoea [Unknown]
  - Intentional product misuse [Unknown]
  - Arthropathy [Unknown]
  - Nocturnal dyspnoea [Unknown]

NARRATIVE: CASE EVENT DATE: 2010
